FAERS Safety Report 13167237 (Version 1)
Quarter: 2017Q1

REPORT INFORMATION
  Report Type: Spontaneous
  Country: None (occurrence: US)
  Receive Date: 20170131
  Receipt Date: 20170131
  Transmission Date: 20170428
  Serious: Yes (Other)
  Sender: FDA-Public Use
  Company Number: US-NEWMARKET HEALTH PRODUCTS LLC-1062563

PATIENT
  Age: 64 Year
  Sex: Male
  Weight: 93.64 kg

DRUGS (1)
  1. SOOTHANOL X2 [Suspect]
     Active Substance: CAPSAICIN\MENTHOL
     Indication: HYPERSENSITIVITY
     Route: 061
     Dates: start: 20161219, end: 20161219

REACTIONS (1)
  - Hypersensitivity [Recovering/Resolving]

NARRATIVE: CASE EVENT DATE: 20170118
